FAERS Safety Report 6130084-4 (Version None)
Quarter: 2009Q1

REPORT INFORMATION
  Report Type: 
  Country: None (occurrence: None)
  Receive Date: 20090324
  Receipt Date: 20090316
  Transmission Date: 20090719
  Serious: Yes (Death, Hospitalization, Other)
  Sender: FDA-Public Use
  Company Number: JP-ROCHE-622344

PATIENT
  Age: 72 Year
  Sex: Male

DRUGS (4)
  1. GANCICLOVIR [Suspect]
     Route: 065
  2. FLUCONAZOLE [Suspect]
     Route: 065
  3. CORTICOSTEROIDS [Suspect]
     Route: 048
  4. CYCLOSPORINE [Suspect]
     Route: 065

REACTIONS (9)
  - ABSCESS [None]
  - BONE MARROW FAILURE [None]
  - CYTOMEGALOVIRUS INFECTION [None]
  - FUNGAL INFECTION [None]
  - PLATELET COUNT DECREASED [None]
  - RED BLOOD CELL COUNT DECREASED [None]
  - RESPIRATORY FAILURE [None]
  - STAPHYLOCOCCAL INFECTION [None]
  - ZYGOMYCOSIS [None]
